FAERS Safety Report 5883714-6 (Version None)
Quarter: 2008Q3

REPORT INFORMATION
  Report Type: 
  Country: None (occurrence: None)
  Receive Date: 20080912
  Receipt Date: 20080912
  Transmission Date: 20090109
  Serious: Yes (Life-Threatening, Other)
  Sender: FDA-Public Use
  Company Number: None

PATIENT
  Age: 52 Year
  Sex: Female
  Weight: 78.0187 kg

DRUGS (1)
  1. DELESTROGEN [Suspect]
     Indication: HYSTERECTOMY
     Dosage: ONCE EVERY 4-8 WEEKS
     Dates: start: 19850801, end: 20070927

REACTIONS (9)
  - ASTHMA [None]
  - CONDITION AGGRAVATED [None]
  - DIARRHOEA [None]
  - HYPERTENSION [None]
  - INCORRECT DOSE ADMINISTERED [None]
  - MEDICATION ERROR [None]
  - MIGRAINE [None]
  - VOMITING [None]
  - WEIGHT INCREASED [None]
